FAERS Safety Report 7936060-0 (Version None)
Quarter: 2011Q4

REPORT INFORMATION
  Report Type: 
  Country: None (occurrence: None)
  Receive Date: 20111123
  Receipt Date: 20111118
  Transmission Date: 20120403
  Serious: Yes (Hospitalization)
  Sender: FDA-Public Use
  Company Number: ES-ABBOTT-11P-144-0875020-00

PATIENT
  Age: 53 Year
  Sex: Male
  Weight: 95 kg

DRUGS (4)
  1. METHOTREXATE [Concomitant]
     Indication: PSORIASIS
     Dosage: 4 TABLET, 1 IN 1 DAYS
     Route: 048
     Dates: start: 20101101
  2. HUMIRA [Suspect]
     Indication: PSORIASIS
     Route: 058
     Dates: start: 20080501, end: 20100101
  3. FOLIC ACID [Concomitant]
     Indication: PSORIASIS
     Dates: start: 20110101
  4. HUMIRA [Suspect]
     Dates: start: 20100101

REACTIONS (2)
  - RENAL COLIC [None]
  - SOMNOLENCE [None]
